FAERS Safety Report 5949230-8 (Version None)
Quarter: 2008Q4

REPORT INFORMATION
  Report Type: 
  Country: None (occurrence: None)
  Receive Date: 20081111
  Receipt Date: 20081103
  Transmission Date: 20090506
  Serious: Yes (Hospitalization)
  Sender: FDA-Public Use
  Company Number: US-MERCK-0705USA04187

PATIENT
  Age: 63 Year
  Sex: Female

DRUGS (2)
  1. FOSAMAX [Suspect]
     Indication: OSTEOPOROSIS
     Route: 048
  2. FOSAMAX [Suspect]
     Route: 048

REACTIONS (22)
  - ABSCESS [None]
  - ANXIETY [None]
  - ARTHRALGIA [None]
  - BREAST CANCER [None]
  - BRONCHIAL HYPERREACTIVITY [None]
  - BRONCHITIS [None]
  - DENTAL CARIES [None]
  - DEPRESSION [None]
  - DIABETES MELLITUS [None]
  - DYSPNOEA [None]
  - GINGIVAL BLEEDING [None]
  - HYPOXIA [None]
  - MULTIPLE INJURIES [None]
  - NEOPLASM MALIGNANT [None]
  - OEDEMA MOUTH [None]
  - ORAL INFECTION [None]
  - ORAL PAIN [None]
  - PAIN [None]
  - PAIN IN JAW [None]
  - PLEURAL FIBROSIS [None]
  - TOOTH INFECTION [None]
  - TOOTH LOSS [None]
